FAERS Safety Report 8792666 (Version 2)
Quarter: 2012Q4

REPORT INFORMATION
  Report Type: 
  Country: US (occurrence: US)
  Receive Date: 20120918
  Receipt Date: 20121114
  Transmission Date: 20130627
  Serious: Yes (Death)
  Sender: FDA-Public Use
  Company Number: US-CELGENEUS-163-20785-12091246

PATIENT
  Age: 63 Year
  Sex: Male

DRUGS (13)
  1. THALOMID [Suspect]
     Indication: MALIGNANT NEOPLASM OF PROSTATE
     Dosage: 200 Milligram
     Route: 048
     Dates: start: 201008
  2. THALOMID [Suspect]
     Dosage: 200 Milligram
     Route: 048
     Dates: start: 201109, end: 2012
  3. TAXOTERE [Concomitant]
     Indication: DRUG USE FOR UNKNOWN INDICATION
     Dosage: 120 Milligram
     Dates: start: 20120214, end: 20120515
  4. AVASTIN [Concomitant]
     Indication: DRUG USE FOR UNKNOWN INDICATION
     Dosage: 400 Milligram
     Dates: start: 20120214, end: 20120515
  5. DECADRON [Concomitant]
     Indication: DRUG USE FOR UNKNOWN INDICATION
     Route: 065
     Dates: start: 20120306
  6. ZOFRAN [Concomitant]
     Indication: DRUG USE FOR UNKNOWN INDICATION
     Dosage: 8 Milligram
     Route: 065
     Dates: start: 20120515
  7. B6 [Concomitant]
     Indication: DRUG USE FOR UNKNOWN INDICATION
     Route: 065
  8. VITAMIN B12 [Concomitant]
     Indication: VITAMIN B12 DEFICIENCY
     Dosage: 500
     Route: 065
     Dates: start: 20120515
  9. VITAMIN B12 [Concomitant]
     Dosage: 1000
     Route: 065
     Dates: start: 20120214, end: 20120702
  10. LASIX [Concomitant]
     Indication: DRUG USE FOR UNKNOWN INDICATION
     Route: 041
  11. ALDACTONE [Concomitant]
     Indication: DRUG USE FOR UNKNOWN INDICATION
     Route: 041
  12. FOLIC ACID [Concomitant]
     Indication: DRUG USE FOR UNKNOWN INDICATION
     Route: 065
  13. PROCRIT [Concomitant]
     Indication: DRUG USE FOR UNKNOWN INDICATION
     Dosage: 40,000
     Route: 065
     Dates: start: 20120515, end: 20120702

REACTIONS (1)
  - Prostate cancer [Fatal]
